FAERS Safety Report 7981582 (Version 2)
Quarter: 2012Q4

REPORT INFORMATION
  Report Type: 
  Country: CA (occurrence: CA)
  Receive Date: 20110608
  Receipt Date: 20121109
  Transmission Date: 20130627
  Serious: Yes (Other)
  Sender: FDA-Public Use
  Company Number: PHMT2006CA01748

PATIENT
  Age: 45 Year
  Sex: Female

DRUGS (6)
  1. SANDOSTATIN LAR [Suspect]
     Indication: ACROMEGALY
     Dosage: 30 mg, TIW
     Dates: start: 20010118
  2. ALTACE [Concomitant]
  3. HYDROCHLOROTHIAZIDE [Concomitant]
  4. LOSEC                                   /CAN/ [Concomitant]
  5. VENTOLINE INHALATOR [Concomitant]
  6. ZOLOFT [Concomitant]

REACTIONS (7)
  - Urinary tract infection [Not Recovered/Not Resolved]
  - Tooth abscess [Unknown]
  - Blood pressure increased [Unknown]
  - Blood pressure diastolic increased [Unknown]
  - Blood pressure systolic increased [Unknown]
  - Skin lesion [Unknown]
  - Vomiting [Unknown]
